FAERS Safety Report 8492398-2 (Version None)
Quarter: 2012Q3

REPORT INFORMATION
  Report Type: 
  Country: None (occurrence: None)
  Receive Date: 20120706
  Receipt Date: 20120627
  Transmission Date: 20120928
  Serious: Yes (Life-Threatening, Other)
  Sender: FDA-Public Use
  Company Number: JP-ROCHE-716671

PATIENT
  Sex: Male
  Weight: 58 kg

DRUGS (5)
  1. NORVASC [Concomitant]
     Route: 048
  2. FAMOTIDINE [Concomitant]
     Route: 048
  3. ENALAPRIL MALEATE [Concomitant]
     Route: 048
  4. BASEN [Concomitant]
     Route: 048
  5. XELODA [Suspect]
     Indication: COLORECTAL CANCER
     Route: 048
     Dates: start: 20100708, end: 20100712

REACTIONS (5)
  - BLOOD PRESSURE DECREASED [None]
  - LEUKOENCEPHALOPATHY [None]
  - VENTRICULAR HYPOKINESIA [None]
  - ELECTROCARDIOGRAM ST SEGMENT ELEVATION [None]
  - CARDIOMYOPATHY [None]
